FAERS Safety Report 10481827 (Version 2)
Quarter: 2014Q4

REPORT INFORMATION
  Report Type: Report from Study
  Country: US (occurrence: US)
  Receive Date: 20140929
  Receipt Date: 20141031
  Transmission Date: 20150528
  Serious: Yes (Hospitalization)
  Sender: FDA-Public Use
  Company Number: PHEH2014US018951

PATIENT
  Sex: Male

DRUGS (2)
  1. ILARIS [Suspect]
     Active Substance: CANAKINUMAB
     Dosage: 150 MG, EVERY 57 DAYS
     Route: 058
     Dates: start: 20140925
  2. ILARIS [Suspect]
     Active Substance: CANAKINUMAB
     Indication: PRODUCT USED FOR UNKNOWN INDICATION
     Dosage: 150 MG, EVERY 57 DAYS
     Route: 058
     Dates: start: 20140724

REACTIONS (3)
  - Sensory loss [Unknown]
  - Transient ischaemic attack [Unknown]
  - Confusional state [Unknown]
